FAERS Safety Report 5529504-5 (Version None)
Quarter: 2007Q4

REPORT INFORMATION
  Report Type: 
  Country: None (occurrence: None)
  Receive Date: 20071129
  Receipt Date: 20071118
  Transmission Date: 20080405
  Serious: Yes (Death, Disabling, Other)
  Sender: FDA-Public Use
  Company Number: US-PFIZER INC-2007098182

PATIENT
  Sex: Female

DRUGS (3)
  1. LIPITOR [Suspect]
  2. CHEMOTHERAPY NOS [Interacting]
     Indication: NEOPLASM MALIGNANT
  3. DRUG, UNSPECIFIED [Interacting]

REACTIONS (7)
  - CARDIAC DISORDER [None]
  - CARDIAC FAILURE [None]
  - DRUG INTERACTION [None]
  - NASOPHARYNGITIS [None]
  - NEOPLASM MALIGNANT [None]
  - PNEUMONIA [None]
  - WALKING AID USER [None]
